FAERS Safety Report 11696051 (Version 1)
Quarter: 2015Q4

REPORT INFORMATION
  Report Type: Spontaneous
  Country: US (occurrence: US)
  Receive Date: 20151104
  Receipt Date: 20151104
  Transmission Date: 20160304
  Serious: Yes (Disabling, Other)
  Sender: FDA-Public Use
  Company Number: US-ACTAVIS-2015-17589

PATIENT
  Sex: Female

DRUGS (2)
  1. CLONAZEPAM (AELLC) [Suspect]
     Active Substance: CLONAZEPAM
     Indication: ANXIETY
  2. CLONAZEPAM (AELLC) [Suspect]
     Active Substance: CLONAZEPAM
     Indication: DEPRESSION
     Dosage: UNKNOWN, MAXIMUM 4 MG DOSE
     Route: 065

REACTIONS (6)
  - Abnormal behaviour [Unknown]
  - Impaired reasoning [Unknown]
  - Panic attack [Unknown]
  - Anxiety [Unknown]
  - Drug ineffective [Unknown]
  - Product contamination [Unknown]

NARRATIVE: CASE EVENT DATE: 201502
